FAERS Safety Report 9342044 (Version 2)
Quarter: 2013Q2

REPORT INFORMATION
  Report Type: Spontaneous
  Country: US (occurrence: US)
  Receive Date: 20130611
  Receipt Date: 20130624
  Transmission Date: 20140414
  Serious: Yes (Other)
  Sender: FDA-Public Use
  Company Number: US-SANOFI-AVENTIS-2013SA058646

PATIENT
  Age: 62 Year
  Sex: Female
  Weight: 59.87 kg

DRUGS (9)
  1. AUBAGIO [Suspect]
     Indication: MULTIPLE SCLEROSIS
     Route: 048
     Dates: start: 20130317
  2. ASPIRIN [Concomitant]
     Indication: FOOT OPERATION
     Dates: start: 20130521, end: 20130528
  3. CALCIUM [Concomitant]
     Indication: OSTEOPENIA
  4. VITAMIN D3 [Concomitant]
     Indication: OSTEOPENIA
     Dosage: DOSE:5000 UNIT(S)
  5. MULTIVITAMINS [Concomitant]
  6. CLINDAMYCIN [Concomitant]
  7. DILTIAZEM HYDROCHLORIDE [Concomitant]
     Indication: HYPERTENSION
  8. LOSARTAN [Concomitant]
     Indication: HYPERTENSION
  9. CELEBREX [Concomitant]
     Indication: ARTHRITIS
     Dates: start: 20130521

REACTIONS (3)
  - Foot operation [Unknown]
  - Diarrhoea [Recovered/Resolved]
  - Syncope [Recovered/Resolved]
